FAERS Safety Report 4286145-8 (Version None)
Quarter: 2004Q1

REPORT INFORMATION
  Report Type: 
  Country: None (occurrence: None)
  Receive Date: 20040203
  Receipt Date: 20040121
  Transmission Date: 20041129
  Serious: Yes (Hospitalization)
  Sender: FDA-Public Use
  Company Number: 2004003990

PATIENT
  Age: 43 Year
  Sex: Female
  Weight: 62 kg

DRUGS (1)
  1. SERTRALINE HCL [Suspect]
     Indication: DEPRESSION
     Dosage: 50MG (DAILY), ORAL
     Route: 048
     Dates: start: 20020201, end: 20030801

REACTIONS (2)
  - BLADDER PAPILLOMA [None]
  - CYSTITIS [None]
